FAERS Safety Report 6817118-6 (Version None)
Quarter: 2010Q3

REPORT INFORMATION
  Report Type: 
  Country: None (occurrence: None)
  Receive Date: 20100706
  Receipt Date: 20100624
  Transmission Date: 20110219
  Serious: Yes (Other)
  Sender: FDA-Public Use
  Company Number: PHHY2010JP41633

PATIENT
  Age: 75 Year
  Sex: Female

DRUGS (1)
  1. VOLTAREN [Suspect]
     Indication: ARTHRALGIA
     Dosage: 50 MG
     Route: 054
     Dates: start: 20070101

REACTIONS (3)
  - ALTERED STATE OF CONSCIOUSNESS [None]
  - RASH [None]
  - SHOCK [None]
